FAERS Safety Report 10472634 (Version 2)
Quarter: 2014Q3

REPORT INFORMATION
  Report Type: Spontaneous
  Country: CA (occurrence: CA)
  Receive Date: 20140924
  Receipt Date: 20140924
  Transmission Date: 20150326
  Serious: Yes (Other)
  Sender: FDA-Public Use
  Company Number: CA-ELI_LILLY_AND_COMPANY-CA201210002071

PATIENT
  Age: 35 Year
  Sex: Male
  Weight: 64 kg

DRUGS (2)
  1. ZYPREXA [Suspect]
     Active Substance: OLANZAPINE
     Indication: PRODUCT USED FOR UNKNOWN INDICATION
     Dosage: 15 MG, UNKNOWN
     Route: 065
     Dates: start: 20090115
  2. CLOPIXOL [Suspect]
     Active Substance: ZUCLOPENTHIXOL ACETATE
     Indication: PRODUCT USED FOR UNKNOWN INDICATION
     Dosage: UNK UNK, UNKNOWN
     Route: 065

REACTIONS (6)
  - Suicidal ideation [Unknown]
  - Dizziness [Unknown]
  - Incontinence [Unknown]
  - Headache [Unknown]
  - Sluggishness [Unknown]
  - Abdominal discomfort [Unknown]

NARRATIVE: CASE EVENT DATE: 20120607
